FAERS Safety Report 5901984-2 (Version None)
Quarter: 2008Q3

REPORT INFORMATION
  Report Type: 
  Country: None (occurrence: None)
  Receive Date: 20080925
  Receipt Date: 20080605
  Transmission Date: 20090109
  Serious: Yes (Hospitalization)
  Sender: FDA-Public Use
  Company Number: 2007US002487

PATIENT
  Age: 17 Year
  Sex: Male
  Weight: 71.5 kg

DRUGS (23)
  1. PROGRAF [Suspect]
     Indication: RENAL TRANSPLANT
     Dates: start: 20040928
  2. DACLIZUMAB(DACLIZUMAB) [Suspect]
     Indication: RENAL TRANSPLANT
     Dosage: 70 MG, OTHER, IV NOS
     Route: 042
     Dates: start: 20040929, end: 20040929
  3. DACLIZUMAB(DACLIZUMAB) [Suspect]
     Indication: RENAL TRANSPLANT
     Dosage: 70 MG, OTHER, IV NOS
     Route: 042
     Dates: start: 20050329, end: 20050329
  4. NORVASC [Concomitant]
  5. NU-IRON (POLYSACCHARIDE-IRON COMPLEX) [Concomitant]
  6. SEPTRA [Concomitant]
  7. SINGULAIR [Concomitant]
  8. PROTONIX [Concomitant]
  9. TIMENTIN (TICARCILLIN DISODIUM, CLAVULANIC ACID) [Concomitant]
  10. CLINDAMYCIN HCL [Concomitant]
  11. CLOTRIMAZOLE [Concomitant]
  12. LINEZOLID [Concomitant]
  13. ETOMIDATE [Concomitant]
  14. ROCURONIUM BROMIDE [Concomitant]
  15. VECURONIUM (VECURONIUM) [Concomitant]
  16. VERSED [Concomitant]
  17. ATIVAN [Concomitant]
  18. BUMEX [Concomitant]
  19. SODIUM PHOSPHATE (SODIUM PHOSPHATE) [Concomitant]
  20. LABETALOL HCL [Concomitant]
  21. EPOGEN [Concomitant]
  22. PREVACID [Concomitant]
  23. CLONIDINE [Concomitant]

REACTIONS (2)
  - PNEUMONIA ASPIRATION [None]
  - RESPIRATORY DISTRESS [None]
